FAERS Safety Report 11621421 (Version 2)
Quarter: 2015Q4

REPORT INFORMATION
  Report Type: Spontaneous
  Country: BE (occurrence: BE)
  Receive Date: 20151012
  Receipt Date: 20151215
  Transmission Date: 20160304
  Serious: Yes (Other)
  Sender: FDA-Public Use
  Company Number: PHHY2015BE122849

PATIENT
  Age: 50 Year
  Sex: Female

DRUGS (1)
  1. FEMARA [Suspect]
     Active Substance: LETROZOLE
     Indication: INVASIVE LOBULAR BREAST CARCINOMA
     Dosage: UNK
     Route: 065
     Dates: start: 2010, end: 2012

REACTIONS (3)
  - Lymphangiosis carcinomatosa [Unknown]
  - Malignant neoplasm progression [Unknown]
  - Invasive lobular breast carcinoma [Unknown]

NARRATIVE: CASE EVENT DATE: 201210
